FAERS Safety Report 4552344-0 (Version None)
Quarter: 2005Q1

REPORT INFORMATION
  Report Type: 
  Country: None (occurrence: None)
  Receive Date: 20050114
  Receipt Date: 20040212
  Transmission Date: 20050727
  Serious: No
  Sender: FDA-Public Use
  Company Number: US-GLAXOSMITHKLINE-A0498021A

PATIENT
  Sex: Female

DRUGS (3)
  1. IMITREX [Suspect]
     Indication: MIGRAINE
     Dosage: 12.5MG AS REQUIRED
     Route: 048
     Dates: start: 19990101
  2. INDERAL [Concomitant]
  3. VERAPAMIL [Concomitant]

REACTIONS (1)
  - PANIC ATTACK [None]
